FAERS Safety Report 5735205-0 (Version None)
Quarter: 2008Q2

REPORT INFORMATION
  Report Type: 
  Country: None (occurrence: None)
  Receive Date: 20080512
  Receipt Date: 20080506
  Transmission Date: 20081010
  Serious: Yes (Hospitalization)
  Sender: FDA-Public Use
  Company Number: DE-ABBOTT-08P-062-0450642-00

PATIENT
  Sex: Female

DRUGS (1)
  1. REDUCTIL 10MG [Suspect]
     Indication: DRUG USE FOR UNKNOWN INDICATION
     Route: 048
     Dates: start: 20080301

REACTIONS (7)
  - CARDIOVASCULAR DISORDER [None]
  - COUGH [None]
  - DECREASED IMMUNE RESPONSIVENESS [None]
  - NAUSEA [None]
  - PAIN [None]
  - PHARYNGOLARYNGEAL PAIN [None]
  - VOMITING [None]
